FAERS Safety Report 6363043-7 (Version None)
Quarter: 2009Q3

REPORT INFORMATION
  Report Type: 
  Country: None (occurrence: None)
  Receive Date: 20090919
  Receipt Date: 20090615
  Transmission Date: 20100115
  Serious: No
  Sender: FDA-Public Use
  Company Number: US-ABBOTT-09P-163-0579988-00

PATIENT
  Sex: Female
  Weight: 52.21 kg

DRUGS (9)
  1. HUMIRA [Suspect]
     Indication: RHEUMATOID ARTHRITIS
     Route: 058
     Dates: start: 20050101, end: 20060101
  2. HUMIRA [Suspect]
     Route: 058
     Dates: start: 20060101
  3. PREDNISONE [Concomitant]
     Indication: RHEUMATOID ARTHRITIS
  4. NAPROXEN [Concomitant]
     Indication: RHEUMATOID ARTHRITIS
  5. CYPROHEPTADINE [Concomitant]
     Indication: DECREASED APPETITE
  6. OXYCONTIN [Concomitant]
     Indication: ARTHRALGIA
  7. PERCOCET [Concomitant]
     Indication: BREAKTHROUGH PAIN
  8. LEXAPRO [Concomitant]
     Indication: DEPRESSION
  9. RESTORIL [Concomitant]
     Indication: INSOMNIA

REACTIONS (3)
  - ARTHRALGIA [None]
  - DRUG DOSE OMISSION [None]
  - JOINT STIFFNESS [None]
